FAERS Safety Report 9293721 (Version 1)
Quarter: 2013Q2

REPORT INFORMATION
  Report Type: Report from Study
  Country: US (occurrence: US)
  Receive Date: 20130516
  Receipt Date: 20130516
  Transmission Date: 20140414
  Serious: Yes (Hospitalization)
  Sender: FDA-Public Use
  Company Number: US-MYLANLABS-2013S1008669

PATIENT
  Age: 64 Year
  Sex: Male

DRUGS (11)
  1. GLIPIZIDE [Suspect]
     Indication: TYPE 2 DIABETES MELLITUS
     Route: 048
     Dates: start: 20091021, end: 20091021
  2. GLIPIZIDE [Suspect]
     Indication: TYPE 2 DIABETES MELLITUS
     Route: 048
     Dates: start: 20101015, end: 20101020
  3. METFORMIN [Suspect]
     Indication: TYPE 2 DIABETES MELLITUS
     Route: 048
     Dates: start: 20090921, end: 20101020
  4. METFORMIN [Concomitant]
     Route: 048
     Dates: start: 200904, end: 20090920
  5. IBUPROFEN [Concomitant]
     Dosage: 200-600MG PRN
     Route: 048
     Dates: start: 200904
  6. DIPHENHYDRAMINE [Concomitant]
     Dosage: 25-50MG PRN
     Route: 048
     Dates: start: 2001
  7. CETIRIZINE HYDROCHLORIDE [Concomitant]
     Route: 048
     Dates: start: 2003
  8. ASPIRIN [Concomitant]
     Route: 048
     Dates: start: 20111012
  9. CLOPIDOGREL [Concomitant]
     Route: 048
     Dates: start: 20101012
  10. METOPROLOL [Concomitant]
     Dates: start: 20101012
  11. LISINOPRIL [Concomitant]
     Route: 048
     Dates: start: 20101012

REACTIONS (2)
  - Myocardial infarction [Recovered/Resolved with Sequelae]
  - Atrial fibrillation [Recovered/Resolved with Sequelae]
